FAERS Safety Report 6797148-3 (Version None)
Quarter: 2010Q2

REPORT INFORMATION
  Report Type: 
  Country: None (occurrence: None)
  Receive Date: 20100618
  Receipt Date: 20100610
  Transmission Date: 20101027
  Serious: Yes (Other)
  Sender: FDA-Public Use
  Company Number: 2010SP033395

PATIENT
  Sex: Male
  Weight: 75 kg

DRUGS (3)
  1. REMERON [Suspect]
     Indication: INSOMNIA
     Dosage: 30 MG; QD; PO
     Route: 048
  2. TYLEX [Concomitant]
  3. COCAINE [Concomitant]

REACTIONS (6)
  - ACCIDENT [None]
  - DRUG INEFFECTIVE FOR UNAPPROVED INDICATION [None]
  - INSOMNIA [None]
  - OFF LABEL USE [None]
  - SURGERY [None]
  - TONGUE DISORDER [None]
